FAERS Safety Report 20850769 (Version 1)
Quarter: 2022Q2

REPORT INFORMATION
  Report Type: Spontaneous
  Country: US (occurrence: None)
  Receive Date: 20220518
  Receipt Date: 20220518
  Transmission Date: 20220721
  Serious: Yes (Other)
  Sender: FDA-Public Use
  Company Number: None

PATIENT
  Age: 67 Year
  Weight: 117.09 kg

DRUGS (1)
  1. VERZENIO [Suspect]
     Active Substance: ABEMACICLIB
     Indication: Breast cancer
     Dosage: FREQUENCY : TWICE A DAY;?
     Route: 048
     Dates: start: 20210311, end: 20220103

REACTIONS (5)
  - Pulmonary embolism [None]
  - Disease progression [None]
  - Pulmonary oedema [None]
  - Deep vein thrombosis [None]
  - Cardiomegaly [None]

NARRATIVE: CASE EVENT DATE: 20211230
